FAERS Safety Report 5268967-X (Version None)
Quarter: 2007Q1

REPORT INFORMATION
  Report Type: 
  Country: None (occurrence: None)
  Receive Date: 20070313
  Receipt Date: 20070307
  Transmission Date: 20070707
  Serious: Yes (Hospitalization)
  Sender: FDA-Public Use
  Company Number: GXKR2007DE02217

PATIENT
  Sex: Male

DRUGS (1)
  1. DOXYHEXAL (NGX) (DOXYCYCLINE) UNKNOWN, 100MG [Suspect]
     Indication: BRONCHITIS
     Dosage: 100 MG, ORAL
     Route: 048

REACTIONS (2)
  - BALANITIS [None]
  - PENILE HAEMORRHAGE [None]
